FAERS Safety Report 22185735 (Version 1)
Quarter: 2023Q2

REPORT INFORMATION
  Report Type: Other
  Country: US (occurrence: None)
  Receive Date: 20230407
  Receipt Date: 20230407
  Transmission Date: 20230722
  Serious: Yes (Other)
  Sender: FDA-Public Use
  Company Number: US-ROCHE-3320995

PATIENT
  Age: 52 Year
  Sex: Male

DRUGS (5)
  1. OCREVUS [Suspect]
     Active Substance: OCRELIZUMAB
     Indication: Multiple sclerosis
     Dosage: FIRST INFUSION: /FEB/2020, SECOND INFUSION: /AUG/2020, SUBSEQUENTLY: 18/JUL/2022, 17/NOV/2021, 02/MA
     Route: 065
  2. AVONEX [Concomitant]
     Active Substance: INTERFERON BETA-1A
     Dosage: 30 MCG/0.5 ML AUTO INJECTOR
  3. DALFAMPRIDINE [Concomitant]
     Active Substance: DALFAMPRIDINE
     Dosage: 10 MG BID
  4. TECFIDERA [Concomitant]
     Active Substance: DIMETHYL FUMARATE
  5. NIFEDIPINE [Concomitant]
     Active Substance: NIFEDIPINE
     Dosage: 30 MG TAKE 1 TABLET BY MOUTH 1 TIME EACH DAY BEFORE BREAKFAST

REACTIONS (8)
  - Paraparesis [Unknown]
  - Pain in extremity [Unknown]
  - Asthenia [Unknown]
  - Malaise [Unknown]
  - Gait disturbance [Unknown]
  - Fall [Unknown]
  - Blood pressure abnormal [Unknown]
  - COVID-19 [Unknown]

NARRATIVE: CASE EVENT DATE: 20220624
